FAERS Safety Report 4775694-1 (Version None)
Quarter: 2005Q3

REPORT INFORMATION
  Report Type: 
  Country: None (occurrence: None)
  Receive Date: 20050921
  Receipt Date: 20050907
  Transmission Date: 20060218
  Serious: Yes (Death)
  Sender: FDA-Public Use
  Company Number: 2005S1006303

PATIENT
  Age: 79 Year
  Sex: Male
  Weight: 87.0906 kg

DRUGS (13)
  1. FENTANYL [Suspect]
     Indication: BACK PAIN
     Dosage: 50 MCG/HR;Q3D; TDER
     Route: 062
     Dates: start: 20050101, end: 20050331
  2. FENTANYL [Suspect]
     Indication: SPINAL COLUMN STENOSIS
     Dosage: 50 MCG/HR;Q3D; TDER
     Route: 062
     Dates: start: 20050101, end: 20050331
  3. FENTANYL [Suspect]
     Indication: BACK PAIN
     Dosage: 75 MCG/HR; Q3D; TDER
     Route: 062
     Dates: start: 20050331, end: 20050402
  4. FENTANYL [Suspect]
     Indication: SPINAL COLUMN STENOSIS
     Dosage: 75 MCG/HR; Q3D; TDER
     Route: 062
     Dates: start: 20050331, end: 20050402
  5. PARACETAMOL [Concomitant]
  6. ASPIRIN [Concomitant]
  7. VITAMINS [Concomitant]
  8. VITAMIN B NOS [Concomitant]
  9. FOLIC ACID [Concomitant]
  10. FINASTERIDE [Concomitant]
  11. ERGOCALCIFEROL/ASCORBIC ACID/FOLIC ACID/THIAMINE HYDROCHLORIDE/RETINOL [Concomitant]
  12. SIMVASTATIN [Concomitant]
  13. TAMSULOSIN HYDROCHLORIDE [Concomitant]

REACTIONS (9)
  - ATHEROSCLEROSIS [None]
  - CONFUSIONAL STATE [None]
  - FATIGUE [None]
  - HYPOVENTILATION [None]
  - JUDGEMENT IMPAIRED [None]
  - LIVEDO RETICULARIS [None]
  - MALAISE [None]
  - MUSCULOSKELETAL STIFFNESS [None]
  - SOMNOLENCE [None]
